FAERS Safety Report 21442861 (Version 1)
Quarter: 2022Q4

REPORT INFORMATION
  Report Type: Spontaneous
  Country: US (occurrence: US)
  Receive Date: 20221012
  Receipt Date: 20221012
  Transmission Date: 20230112
  Serious: No
  Sender: FDA-Public Use
  Company Number: US-JNJFOC-20221016707

PATIENT
  Sex: Female

DRUGS (2)
  1. TYLENOL [Suspect]
     Active Substance: ACETAMINOPHEN
     Indication: Pain in extremity
     Dosage: SHE TOOK A COUPLE OF TYLENOL
     Route: 065
     Dates: start: 202210
  2. COVID-19 VACCINE [Concomitant]
     Indication: Product used for unknown indication
     Dosage: THIRD BOOSTER INJECTED IN LEFT ARM
     Route: 065
     Dates: start: 20221001

REACTIONS (1)
  - Pain in extremity [Not Recovered/Not Resolved]

NARRATIVE: CASE EVENT DATE: 20221001
